FAERS Safety Report 7750714-0 (Version None)
Quarter: 2011Q3

REPORT INFORMATION
  Report Type: 
  Country: None (occurrence: None)
  Receive Date: 20110912
  Receipt Date: 20110826
  Transmission Date: 20111222
  Serious: Yes (Hospitalization)
  Sender: FDA-Public Use
  Company Number: 1000011731

PATIENT
  Age: 62 Year
  Sex: Female

DRUGS (6)
  1. SERESTA (OXAZEPAM) (75 MILLIGRAM, TABLETS) [Suspect]
     Dosage: 75 MG (75 MG, 1 IN 1 D), ORAL
     Route: 048
     Dates: end: 20090401
  2. METFORMIN (METFORMIN) (TABLETS) [Suspect]
     Indication: DIABETES MELLITUS
     Dosage: 3 G (1 GM, 3 IN 1 D), ORAL
     Route: 048
     Dates: end: 20090331
  3. DIAMICRON (GLICLAZIDE) (30 MILLIGRAM, TABLETS) [Suspect]
     Indication: DIABETES MELLITUS
     Dosage: 30 MG (30 MG, 1 IN 1 D), ORAL
     Route: 048
     Dates: end: 20090331
  4. ACAMPROSATE CALCIUM [Suspect]
     Indication: ALCOHOLISM
     Dosage: 1998 MG (666 MG, 3 IN 1 D), ORAL;
     Route: 048
     Dates: end: 20090401
  5. NEBIVOLOL HCL [Suspect]
     Indication: HYPERTENSION
     Dosage: 5 MG, (5MG, 1 IN 1 D), ORAL;
     Route: 048
  6. CORENITEC (ENALAPRIL HYDROCHLOROTHIAZIDE) (TABLETS) [Suspect]
     Indication: HYPERTENSION
     Dosage: 1 DF (1 DOSAGE FORMS, 1 IN 1 D), ORAL
     Route: 048
     Dates: end: 20090401

REACTIONS (9)
  - BLOOD GLUCOSE DECREASED [None]
  - DECREASED APPETITE [None]
  - DEHYDRATION [None]
  - RENAL FAILURE ACUTE [None]
  - BLOOD POTASSIUM INCREASED [None]
  - HAEMODIALYSIS [None]
  - LACTIC ACIDOSIS [None]
  - HYPOGLYCAEMIA [None]
  - HYPERKALAEMIA [None]
